FAERS Safety Report 22230884 (Version 1)
Quarter: 2023Q2

REPORT INFORMATION
  Report Type: Spontaneous
  Country: US (occurrence: US)
  Receive Date: 20230420
  Receipt Date: 20230420
  Transmission Date: 20230722
  Serious: No
  Sender: FDA-Public Use
  Company Number: US-AUROBINDO-AUR-APL-2022-011810

PATIENT

DRUGS (3)
  1. ARMODAFINIL [Suspect]
     Active Substance: ARMODAFINIL
     Indication: Sleep apnoea syndrome
     Dosage: 1/2 IN THE MORNING AND 1/2 IN THE AFTERNOON
     Route: 065
  2. ARMODAFINIL [Suspect]
     Active Substance: ARMODAFINIL
     Indication: Narcolepsy
     Dosage: 1 IN THE MORNING AND 1/2 IN THE AFTERNOON
     Route: 065
  3. ARMODAFINIL [Suspect]
     Active Substance: ARMODAFINIL
     Dosage: 2 IN THE INSTEAD OF 1
     Route: 065

REACTIONS (2)
  - Drug ineffective [Unknown]
  - Product supply issue [Unknown]
